FAERS Safety Report 18304801 (Version 1)
Quarter: 2020Q3

REPORT INFORMATION
  Report Type: Spontaneous
  Country: US (occurrence: US)
  Receive Date: 20200924
  Receipt Date: 20200924
  Transmission Date: 20201103
  Serious: No
  Sender: FDA-Public Use
  Company Number: US-GLENMARK PHARMACEUTICALS-2020GMK048927

PATIENT

DRUGS (4)
  1. ROSUVASTATIN CALCIUM TABLETS 20 MG [Suspect]
     Active Substance: ROSUVASTATIN CALCIUM
     Dosage: 5 MILLIGRAM, OD
     Route: 048
     Dates: start: 2020, end: 2020
  2. ROSUVASTATIN CALCIUM TABLETS 20 MG [Suspect]
     Active Substance: ROSUVASTATIN CALCIUM
     Indication: BLOOD CHOLESTEROL INCREASED
     Dosage: 20 MILLIGRAM, OD
     Route: 048
     Dates: start: 202005, end: 2020
  3. ROSUVASTATIN CALCIUM TABLETS 20 MG [Suspect]
     Active Substance: ROSUVASTATIN CALCIUM
     Dosage: 10 MILLIGRAM, OD
     Route: 048
     Dates: start: 2020, end: 2020
  4. BABY ASPIRIN [Concomitant]
     Active Substance: ASPIRIN
     Indication: PRODUCT USED FOR UNKNOWN INDICATION
     Dosage: UNK
     Route: 065

REACTIONS (4)
  - Dizziness [Not Recovered/Not Resolved]
  - Dyspnoea [Not Recovered/Not Resolved]
  - Wrong technique in product usage process [Unknown]
  - Product administration error [Unknown]

NARRATIVE: CASE EVENT DATE: 2020
